FAERS Safety Report 21171434 (Version 3)
Quarter: 2022Q3

REPORT INFORMATION
  Report Type: Spontaneous
  Country: DE (occurrence: DE)
  Receive Date: 20220804
  Receipt Date: 20220825
  Transmission Date: 20221026
  Serious: Yes (Hospitalization)
  Sender: FDA-Public Use
  Company Number: DE-ORGANON-O2207DEU001591

PATIENT

DRUGS (20)
  1. ATORVASTATIN [Suspect]
     Active Substance: ATORVASTATIN
     Indication: Condition aggravated
     Dosage: 40 MILLIGRAM QD
     Route: 048
     Dates: start: 20220704
  2. ATORVASTATIN [Suspect]
     Active Substance: ATORVASTATIN
     Indication: Hypercholesterolaemia
     Dosage: 40 MILLIGRAM QD
     Route: 048
     Dates: start: 20220311
  3. ASPIRIN [Suspect]
     Active Substance: ASPIRIN
     Indication: Anticoagulant therapy
     Dosage: 100 MILLIGRAM QD
     Route: 048
     Dates: start: 20220705
  4. ASPIRIN [Suspect]
     Active Substance: ASPIRIN
     Indication: Condition aggravated
     Dosage: 100 MILLIGRAM QD
     Route: 048
     Dates: start: 20220311
  5. CANDESARTAN [Suspect]
     Active Substance: CANDESARTAN
     Indication: Condition aggravated
     Dosage: 0.16 MILLIGRAM, QD
     Route: 048
     Dates: start: 20220705
  6. CANDESARTAN [Suspect]
     Active Substance: CANDESARTAN
     Indication: Hypertension
     Route: 048
     Dates: start: 20220311
  7. CARBOPLATIN [Suspect]
     Active Substance: CARBOPLATIN
     Indication: Non-small cell lung cancer stage III
     Dosage: 681.24 MILLIGRAM, UNDER THE CURVE (AUC) 6 MG/ML/MIN, ONCE
     Route: 042
     Dates: start: 20220419, end: 20220419
  8. CARBOPLATIN [Suspect]
     Active Substance: CARBOPLATIN
     Dosage: AREA UNDER THE CURVE (AUC) 2 MG/ML/MIN ON DAY 1, 8 AND 15 IN CYCLE 2 AND 3 CYCLICAL
     Route: 042
     Dates: start: 20220509, end: 20220614
  9. EZETIMIBE [Suspect]
     Active Substance: EZETIMIBE
     Indication: Hypercholesterolaemia
     Dosage: 10 MILLIGRAM QD
     Route: 048
     Dates: start: 20220311
  10. EZETIMIBE [Suspect]
     Active Substance: EZETIMIBE
     Indication: Condition aggravated
     Dosage: 10 MILLIGRAM, QD
     Route: 048
     Dates: start: 20220704
  11. HYDROCHLOROTHIAZIDE [Suspect]
     Active Substance: HYDROCHLOROTHIAZIDE
     Indication: Condition aggravated
     Dosage: 25 MILLIGRAM QD
     Route: 048
     Dates: start: 20220704
  12. HYDROCHLOROTHIAZIDE [Suspect]
     Active Substance: HYDROCHLOROTHIAZIDE
     Indication: Hypertension
     Route: 048
     Dates: start: 20220311
  13. INDACATEROL [Suspect]
     Active Substance: INDACATEROL
     Indication: Condition aggravated
     Dosage: 85 MICROGRAM QD FORMULATION REPORTED AS INHALANT
     Dates: start: 20220705
  14. METOPROLOL [Suspect]
     Active Substance: METOPROLOL
     Indication: Condition aggravated
     Route: 048
     Dates: start: 20220705
  15. METOPROLOL [Suspect]
     Active Substance: METOPROLOL
     Indication: Insomnia
     Route: 048
     Dates: start: 20220311
  16. METOPROLOL [Suspect]
     Active Substance: METOPROLOL
     Indication: Hypertension
  17. PEMBROLIZUMAB [Suspect]
     Active Substance: PEMBROLIZUMAB
     Indication: Non-small cell lung cancer stage III
     Dosage: UNK
     Route: 065
  18. PACLITAXEL [Suspect]
     Active Substance: PACLITAXEL
     Indication: Non-small cell lung cancer stage III
     Dosage: 200 MG/M2 (DOSE ALSO REPORTED AS 314 MG), ONCE
     Route: 042
     Dates: start: 20220419, end: 20220419
  19. PACLITAXEL [Suspect]
     Active Substance: PACLITAXEL
     Dosage: 45 MG/M2, ON DAY 1, 8 AND 15 IN CYCLE 2 AND 3 CYCLICAL
     Route: 042
     Dates: start: 20220509, end: 20220614
  20. ZOPICLONE [Concomitant]
     Active Substance: ZOPICLONE
     Indication: Insomnia
     Dosage: 3.75 MILLIGRAM, QD
     Route: 048
     Dates: start: 20220607

REACTIONS (3)
  - Chronic obstructive pulmonary disease [Recovered/Resolved]
  - Product use in unapproved indication [Unknown]
  - Radiation pneumonitis [Recovered/Resolved]

NARRATIVE: CASE EVENT DATE: 20220629
